FAERS Safety Report 5026013-7 (Version None)
Quarter: 2006Q2

REPORT INFORMATION
  Report Type: 
  Country: None (occurrence: None)
  Receive Date: 20060614
  Receipt Date: 20050812
  Transmission Date: 20061013
  Serious: Yes (Hospitalization, Disabling)
  Sender: FDA-Public Use
  Company Number: US-ROCHE-414262

PATIENT
  Age: 17 Year
  Sex: Female
  Weight: 45.8 kg

DRUGS (5)
  1. ACCUTANE [Suspect]
     Indication: ACNE
     Route: 048
     Dates: start: 19980713, end: 19990126
  2. ACCUTANE [Suspect]
     Route: 048
     Dates: start: 20000519, end: 20000622
  3. ACCUTANE [Suspect]
     Route: 048
     Dates: start: 20010523
  4. BACTRIM DS [Concomitant]
     Indication: SINUSITIS
     Route: 048
     Dates: start: 19981124
  5. DRYSOL [Concomitant]
     Indication: HYPERHIDROSIS
     Dates: start: 19980713

REACTIONS (35)
  - ANAEMIA [None]
  - ANKYLOSING SPONDYLITIS [None]
  - ANXIETY [None]
  - ARTHRALGIA [None]
  - BACK PAIN [None]
  - BLOOD CALCIUM DECREASED [None]
  - BLOOD CHOLESTEROL INCREASED [None]
  - BLOOD GLUCOSE INCREASED [None]
  - BLOOD SODIUM DECREASED [None]
  - CERVICITIS [None]
  - CHEILITIS [None]
  - CHEST DISCOMFORT [None]
  - COLITIS [None]
  - COLITIS ULCERATIVE [None]
  - DEHYDRATION [None]
  - DEPRESSION [None]
  - DIZZINESS [None]
  - DRY SKIN [None]
  - ERYTHEMA [None]
  - EYE IRRITATION [None]
  - FATIGUE [None]
  - FUNGAL INFECTION [None]
  - GASTROINTESTINAL DISORDER [None]
  - GASTROOESOPHAGEAL REFLUX DISEASE [None]
  - INSOMNIA [None]
  - INTESTINAL HAEMORRHAGE [None]
  - MULTI-ORGAN DISORDER [None]
  - OSTEOARTHRITIS [None]
  - OVARIAN CYST [None]
  - PLATELET COUNT INCREASED [None]
  - PYLORIC STENOSIS [None]
  - RADICULOPATHY [None]
  - RECTAL HAEMORRHAGE [None]
  - ROAD TRAFFIC ACCIDENT [None]
  - WEIGHT DECREASED [None]
